FAERS Safety Report 21376131 (Version 1)
Quarter: 2022Q3

REPORT INFORMATION
  Report Type: Spontaneous
  Country: US (occurrence: US)
  Receive Date: 20220926
  Receipt Date: 20220926
  Transmission Date: 20221027
  Serious: No
  Sender: FDA-Public Use
  Company Number: US-drreddys-SPO/USA/22/0154486

PATIENT
  Age: 27 Year
  Sex: Female

DRUGS (2)
  1. ACCUTANE [Suspect]
     Active Substance: ISOTRETINOIN
     Indication: Product used for unknown indication
     Dosage: RMA ISSUE DATE: 8 AUGUST 2022 07:24:19 PM, 07 JULY 2022 12:41:06 PM.
  2. ACCUTANE [Suspect]
     Active Substance: ISOTRETINOIN
     Dosage: RMA ISSUE DATE: 01 JUNE 2022 01:47:08 PM, 27 APRIL 2022 01:23:49 PM.

REACTIONS (1)
  - Dry eye [Unknown]
